FAERS Safety Report 9104248 (Version 1)
Quarter: 2013Q1

REPORT INFORMATION
  Report Type: Spontaneous
  Country: IT (occurrence: IT)
  Receive Date: 20130219
  Receipt Date: 20130219
  Transmission Date: 20140127
  Serious: Yes (Hospitalization)
  Sender: FDA-Public Use
  Company Number: PHHY2013IT015123

PATIENT
  Sex: Female

DRUGS (3)
  1. CARBAMAZEPINE [Suspect]
     Indication: TRIGEMINAL NEURALGIA
     Dosage: 2200 MG, PRN
     Route: 048
     Dates: start: 20120122, end: 20130124
  2. CARBAMAZEPINE [Suspect]
     Dosage: 200 MG PER DAY
  3. CARBAMAZEPINE [Suspect]
     Dosage: 200 MG 2XDAY

REACTIONS (4)
  - Slow response to stimuli [Recovering/Resolving]
  - Vertigo [Recovering/Resolving]
  - Overdose [Recovering/Resolving]
  - Nausea [Recovering/Resolving]
